FAERS Safety Report 15824653 (Version 2)
Quarter: 2019Q1

REPORT INFORMATION
  Report Type: Spontaneous
  Country: US (occurrence: US)
  Receive Date: 20190115
  Receipt Date: 20190227
  Transmission Date: 20190417
  Serious: No
  Sender: FDA-Public Use
  Company Number: US-BIOGEN-2018BI00514812

PATIENT
  Sex: Female

DRUGS (2)
  1. TYSABRI [Suspect]
     Active Substance: NATALIZUMAB
     Route: 065
  2. TYSABRI [Suspect]
     Active Substance: NATALIZUMAB
     Indication: MULTIPLE SCLEROSIS
     Route: 065
     Dates: start: 20090616

REACTIONS (6)
  - Product dose omission [Unknown]
  - Anxiety [Unknown]
  - Migraine [Unknown]
  - Bacterial vulvovaginitis [Unknown]
  - Memory impairment [Unknown]
  - Prescribed underdose [Unknown]
